FAERS Safety Report 6767169-5 (Version None)
Quarter: 2010Q2

REPORT INFORMATION
  Report Type: 
  Country: None (occurrence: None)
  Receive Date: 20100611
  Receipt Date: 20100611
  Transmission Date: 20101027
  Serious: Yes (Disabling)
  Sender: FDA-Public Use
  Company Number: None

PATIENT
  Sex: Female
  Weight: 49.8957 kg

DRUGS (1)
  1. FOSAMAX PLUS D [Suspect]
     Indication: OSTEOPENIA
     Dosage: ONE TAB WEEKLY PO, APPROX THREE YEARS
     Route: 048
     Dates: start: 20060224, end: 20090322

REACTIONS (2)
  - TOOTH DISORDER [None]
  - TOOTH EXTRACTION [None]
